FAERS Safety Report 8966691 (Version 1)
Quarter: 2012Q4

REPORT INFORMATION
  Report Type: 
  Country: US (occurrence: US)
  Receive Date: 20121217
  Receipt Date: 20121217
  Transmission Date: 20130627
  Serious: Yes (Other)
  Sender: FDA-Public Use
  Company Number: US-GENZYME-CLOF-1002436

PATIENT
  Age: 59 Year
  Sex: Female
  Weight: 68.2 kg

DRUGS (22)
  1. CLOLAR [Suspect]
     Indication: ACUTE MYELOID LEUKAEMIA
     Dosage: UNK, Induction therapy
     Route: 065
     Dates: start: 20111028, end: 20111101
  2. CLOLAR [Suspect]
     Dosage: UNK, consolidation part 1
     Route: 065
     Dates: start: 20111209, end: 20111211
  3. CLOLAR [Suspect]
     Dosage: UNK, consolidation part 2
     Route: 065
     Dates: start: 20120110, end: 20120112
  4. CLOLAR [Suspect]
     Dosage: UNK, consolidation part 3
     Route: 065
     Dates: start: 20120209, end: 20120211
  5. IDARUBICIN [Concomitant]
     Indication: ACUTE MYELOID LEUKAEMIA
     Dosage: UNK, Induction therapy
     Route: 065
     Dates: start: 20111028, end: 20111101
  6. IDARUBICIN [Concomitant]
     Dosage: UNK, Consolidation part 1
     Route: 065
     Dates: start: 20111209, end: 20111211
  7. IDARUBICIN [Concomitant]
     Dosage: UNK, Consolidation part 2
     Route: 065
     Dates: start: 20120110, end: 20120112
  8. IDARUBICIN [Concomitant]
     Dosage: UNK, Consolidation part 3
     Route: 065
     Dates: start: 20120209, end: 20120211
  9. ARA-C [Concomitant]
     Indication: ACUTE MYELOID LEUKAEMIA
     Dosage: UNK, Induction therapy
     Route: 065
     Dates: start: 20111028, end: 20111101
  10. ARA-C [Concomitant]
     Dosage: UNK, consolidation theray part 1
     Route: 065
     Dates: start: 20111209, end: 20111211
  11. ARA-C [Concomitant]
     Dosage: UNK, consolidation theray part 2
     Route: 065
     Dates: start: 20120110, end: 20120112
  12. ARA-C [Concomitant]
     Dosage: UNK, consolidation theray part 3
     Route: 065
     Dates: start: 20120209, end: 20120211
  13. METHYLPREDNISOLONE [Concomitant]
     Indication: ACUTE MYELOID LEUKAEMIA
     Dosage: UNK, Induction therapy
     Route: 065
     Dates: start: 20111028, end: 20111101
  14. ONDANSETRON [Concomitant]
     Indication: NAUSEA
     Dosage: UNK
     Route: 065
     Dates: start: 20120314, end: 20121115
  15. OXYCODONE [Concomitant]
     Indication: CANCER PAIN
     Dosage: UNK
     Route: 065
     Dates: start: 20120314, end: 20121115
  16. TACROLIMUS [Concomitant]
     Indication: PROPHYLAXIS AGAINST GRAFT VERSUS HOST DISEASE
     Dosage: UNK
     Route: 065
     Dates: start: 20120405, end: 20120810
  17. TOLTERODINE L-TARTRATE [Concomitant]
     Indication: PROPHYLAXIS
     Dosage: UNK
     Route: 065
     Dates: start: 20120416, end: 20121115
  18. VALACICLOVIR [Concomitant]
     Indication: INFECTION PROPHYLAXIS
     Dosage: UNK
     Route: 065
     Dates: start: 20120424, end: 20121115
  19. PENTAMIDINE [Concomitant]
     Indication: PROPHYLAXIS
     Dosage: UNK
     Route: 065
     Dates: start: 20120601, end: 20121115
  20. DIPHENHYDRAMINE [Concomitant]
     Indication: PREMEDICATION
     Dosage: UNK
     Route: 065
     Dates: start: 20120608, end: 20121115
  21. ACETAMINOPHEN [Concomitant]
     Indication: PREMEDICATION
     Dosage: UNK
     Route: 065
     Dates: start: 20120608, end: 20121115
  22. HYDROCORTISONE [Concomitant]
     Indication: PREMEDICATION
     Dosage: UNK
     Route: 065
     Dates: start: 20120614, end: 20121115

REACTIONS (21)
  - Hydronephrosis [Unknown]
  - Acute myeloid leukaemia recurrent [Unknown]
  - Neuropathy peripheral [Unknown]
  - Bacteraemia [Recovered/Resolved]
  - Viral haemorrhagic cystitis [Unknown]
  - Chest pain [Recovered/Resolved]
  - Gastrooesophageal reflux disease [Unknown]
  - Cholelithiasis [Unknown]
  - Dry eye [Unknown]
  - Vulvovaginal pruritus [Unknown]
  - Ear pain [Recovered/Resolved]
  - Skin disorder [Recovered/Resolved]
  - Skin hyperpigmentation [Recovered/Resolved]
  - Dry skin [Recovered/Resolved]
  - Constipation [Recovered/Resolved]
  - Oedema peripheral [Recovered/Resolved]
  - Mouth ulceration [Unknown]
  - Mucosal inflammation [Recovered/Resolved]
  - Rash [Unknown]
  - Nail infection [Recovered/Resolved]
  - Nail infection [Recovered/Resolved]
